FAERS Safety Report 11244744 (Version 1)
Quarter: 2015Q3

REPORT INFORMATION
  Report Type: Spontaneous
  Country: US (occurrence: US)
  Receive Date: 20150707
  Receipt Date: 20150707
  Transmission Date: 20151125
  Serious: No
  Sender: FDA-Public Use
  Company Number: US-DSJP-DSU-2015-100357

PATIENT
  Age: 76 Year
  Sex: Female

DRUGS (4)
  1. LEVOTHYROXINE. [Concomitant]
     Active Substance: LEVOTHYROXINE
     Indication: THYROID DISORDER
     Dosage: 50 ?G, UNK
  2. WELCHOL [Suspect]
     Active Substance: COLESEVELAM HYDROCHLORIDE
     Indication: HYPERLIPIDAEMIA
     Dosage: 625 MG, BID
     Route: 048
     Dates: start: 20140910, end: 20140915
  3. TIMOLOL. [Concomitant]
     Active Substance: TIMOLOL
     Indication: GLAUCOMA
     Dosage: 1 DROP IN BOTH THE EYES, BID
     Route: 047
  4. VICODIN [Concomitant]
     Active Substance: ACETAMINOPHEN\HYDROCODONE BITARTRATE
     Indication: FIBROMYALGIA
     Dosage: HALF OF 7.5/ 500 MG QPM
     Route: 048

REACTIONS (2)
  - No adverse event [Recovered/Resolved]
  - Drug administration error [Recovered/Resolved]

NARRATIVE: CASE EVENT DATE: 201409
